FAERS Safety Report 5825779-3 (Version None)
Quarter: 2008Q3

REPORT INFORMATION
  Report Type: 
  Country: None (occurrence: None)
  Receive Date: 20080729
  Receipt Date: 20080723
  Transmission Date: 20090109
  Serious: Yes (Other)
  Sender: FDA-Public Use
  Company Number: US-ABBOTT-08P-163-0465619-00

PATIENT
  Sex: Female
  Weight: 63.56 kg

DRUGS (2)
  1. VICODIN [Suspect]
     Indication: DRUG USE FOR UNKNOWN INDICATION
  2. REMICADE [Suspect]
     Indication: RHEUMATOID ARTHRITIS
     Dosage: LYOPHILIZED POWDER
     Dates: start: 20080124

REACTIONS (2)
  - PAIN [None]
  - SUICIDAL IDEATION [None]
